FAERS Safety Report 6152754-4 (Version None)
Quarter: 2009Q2

REPORT INFORMATION
  Report Type: 
  Country: None (occurrence: None)
  Receive Date: 20090413
  Receipt Date: 20090407
  Transmission Date: 20091009
  Serious: Yes (Hospitalization)
  Sender: FDA-Public Use
  Company Number: US-ROCHE-626436

PATIENT
  Age: 62 Year
  Sex: Female

DRUGS (1)
  1. CAPECITABINE [Suspect]
     Indication: COLORECTAL CANCER
     Dosage: STRENGTH: 500 MG AND 150 MG
     Route: 048
     Dates: start: 20090312

REACTIONS (2)
  - INTESTINAL ULCER [None]
  - MOUTH ULCERATION [None]
